FAERS Safety Report 7441528-X (Version None)
Quarter: 2011Q2

REPORT INFORMATION
  Report Type: 
  Country: None (occurrence: None)
  Receive Date: 20110425
  Receipt Date: 20110425
  Transmission Date: 20111010
  Serious: Yes (Life-Threatening)
  Sender: FDA-Public Use
  Company Number: None

PATIENT
  Age: 79 Year
  Sex: Female

DRUGS (4)
  1. SIMVASTATIN [Suspect]
     Indication: HYPERLIPIDAEMIA
     Dosage: 20 MG DAILY PO
     Route: 048
  2. COLCHICINE [Suspect]
     Indication: PROPHYLAXIS
     Dosage: 0.6 MG DAILY PO
     Route: 048
  3. COLCHICINE [Suspect]
     Indication: GOUT
     Dosage: 0.6 MG DAILY PO
     Route: 048
  4. PREDNISONE [Concomitant]

REACTIONS (1)
  - BLOOD CREATINE PHOSPHOKINASE INCREASED [None]
